FAERS Safety Report 5612701-8 (Version None)
Quarter: 2008Q1

REPORT INFORMATION
  Report Type: 
  Country: None (occurrence: None)
  Receive Date: 20080129
  Receipt Date: 20080114
  Transmission Date: 20080703
  Serious: Yes (Death)
  Sender: FDA-Public Use
  Company Number: 2008S1000055

PATIENT
  Age: 26 Year
  Sex: Male

DRUGS (4)
  1. ROXANOL [Suspect]
     Dosage: PO
     Route: 048
     Dates: end: 20060101
  2. CYCLOBENZAPRINE HCL [Suspect]
     Dosage: PO
     Route: 048
     Dates: end: 20060101
  3. CHLORAL HYDRATE [Suspect]
     Dosage: PO
     Route: 048
     Dates: end: 20060101
  4. HYDROCODONE BITARTRATE [Suspect]
     Dosage: PO
     Route: 048
     Dates: end: 20060101

REACTIONS (8)
  - ANOXIC ENCEPHALOPATHY [None]
  - BRAIN OEDEMA [None]
  - CARDIAC ARREST [None]
  - CHORIOMENINGITIS LYMPHOCYTIC [None]
  - COMPLETED SUICIDE [None]
  - PNEUMONIA [None]
  - RESPIRATORY ARREST [None]
  - UNRESPONSIVE TO STIMULI [None]
